FAERS Safety Report 4748014-6 (Version None)
Quarter: 2005Q3

REPORT INFORMATION
  Report Type: 
  Country: None (occurrence: None)
  Receive Date: 20050818
  Receipt Date: 20050617
  Transmission Date: 20060218
  Serious: Yes (Death, Hospitalization, Other)
  Sender: FDA-Public Use
  Company Number: US-AMGEN-US139172

PATIENT
  Sex: Male
  Weight: 101.7 kg

DRUGS (5)
  1. ENBREL [Suspect]
     Indication: RHEUMATOID ARTHRITIS
     Route: 058
     Dates: start: 20010101, end: 20050606
  2. METHOTREXATE [Concomitant]
     Dates: start: 19950101, end: 20050606
  3. PREDNISONE [Concomitant]
     Dates: start: 20010101, end: 20050606
  4. CELEBREX [Concomitant]
     Dates: start: 20010101, end: 20050606
  5. FOLIC ACID [Concomitant]
     Dates: start: 20030101

REACTIONS (7)
  - BONE MARROW DISORDER [None]
  - FEBRILE NEUTROPENIA [None]
  - HEPATOSPLENOMEGALY [None]
  - HISTOPLASMOSIS DISSEMINATED [None]
  - PANCYTOPENIA [None]
  - PNEUMONIA FUNGAL [None]
  - SPLENIC RUPTURE [None]
